FAERS Safety Report 9981052 (Version 1)
Quarter: 2014Q1

REPORT INFORMATION
  Report Type: Spontaneous
  Country: FR (occurrence: FR)
  Receive Date: 20140307
  Receipt Date: 20140307
  Transmission Date: 20141002
  Serious: Yes (Hospitalization)
  Sender: FDA-Public Use
  Company Number: FR-ROCHE-1355746

PATIENT
  Age: 97 Year
  Sex: Female

DRUGS (11)
  1. ROCEPHINE [Suspect]
     Indication: PRODUCT USED FOR UNKNOWN INDICATION
     Route: 042
     Dates: start: 20120211, end: 20120213
  2. AUGMENTIN [Concomitant]
     Route: 065
     Dates: start: 20120202
  3. RULID [Concomitant]
     Route: 065
     Dates: start: 20120202, end: 20120206
  4. OFLOCET (FRANCE) [Concomitant]
  5. TAVANIC [Concomitant]
  6. BIPERIDYS [Concomitant]
     Route: 065
  7. CORDARONE [Concomitant]
     Route: 065
  8. EUPANTOL [Concomitant]
     Route: 065
  9. STABLON [Concomitant]
     Route: 065
  10. STILNOX [Concomitant]
     Dosage: 10 HALF TABLET IN THE EVENING
     Route: 065
  11. TEMESTA (FRANCE) [Concomitant]
     Dosage: IN EVENING
     Route: 065

REACTIONS (4)
  - Condition aggravated [Recovered/Resolved]
  - Transaminases increased [Recovered/Resolved]
  - Gamma-glutamyltransferase increased [Recovered/Resolved]
  - Blood alkaline phosphatase increased [Recovered/Resolved]
